FAERS Safety Report 4576112-9 (Version None)
Quarter: 2005Q1

REPORT INFORMATION
  Report Type: 
  Country: None (occurrence: None)
  Receive Date: 20050204
  Receipt Date: 20050120
  Transmission Date: 20050727
  Serious: Yes (Hospitalization)
  Sender: FDA-Public Use
  Company Number: 2004-0007807

PATIENT
  Age: 56 Year
  Sex: Male
  Weight: 50 kg

DRUGS (5)
  1. VIREAD [Suspect]
     Indication: HIV INFECTION
     Dosage: 300 GM 1 IN 1 D ORAL
     Route: 048
     Dates: start: 20041010, end: 20041108
  2. NORVIR [Concomitant]
  3. EPIVIR [Concomitant]
  4. FUZEON (ENFURVIRITIDE) [Concomitant]
  5. TIPRANAVIR (TIPRANAVIR) [Concomitant]

REACTIONS (15)
  - ANAEMIA [None]
  - ANOREXIA [None]
  - ASTHENIA [None]
  - BLOOD BICARBONATE DECREASED [None]
  - BLOOD PRESSURE SYSTOLIC INCREASED [None]
  - CONSTIPATION [None]
  - HAEMODIALYSIS [None]
  - HYPOKALAEMIA [None]
  - HYPONATRAEMIA [None]
  - OEDEMA PERIPHERAL [None]
  - POLLAKIURIA [None]
  - PROTEINURIA [None]
  - RENAL FAILURE ACUTE [None]
  - SLEEP DISORDER [None]
  - WEIGHT DECREASED [None]
